FAERS Safety Report 14206678 (Version 2)
Quarter: 2017Q4

REPORT INFORMATION
  Report Type: Spontaneous
  Country: KR (occurrence: KR)
  Receive Date: 20171121
  Receipt Date: 20171204
  Transmission Date: 20180321
  Serious: Yes (Hospitalization)
  Sender: FDA-Public Use
  Company Number: KR-STRIDES ARCOLAB LIMITED-2017SP014080

PATIENT

DRUGS (2)
  1. RANITIDINE. [Suspect]
     Active Substance: RANITIDINE
     Indication: DYSPEPSIA
     Dosage: UNK
     Route: 042
  2. TRAMADOL. [Suspect]
     Active Substance: TRAMADOL
     Indication: ABDOMINAL PAIN UPPER
     Dosage: UNK
     Route: 042

REACTIONS (9)
  - Bradycardia [Unknown]
  - Kounis syndrome [Unknown]
  - Cardiac arrest [Unknown]
  - Circulatory collapse [Unknown]
  - Myocardial infarction [Unknown]
  - Ventricular fibrillation [Unknown]
  - Arteriospasm coronary [Recovered/Resolved]
  - Anaphylactic reaction [Unknown]
  - Dyspepsia [Unknown]
